FAERS Safety Report 22289990 (Version 1)
Quarter: 2023Q2

REPORT INFORMATION
  Report Type: Spontaneous
  Country: US (occurrence: None)
  Receive Date: 20230504
  Receipt Date: 20230504
  Transmission Date: 20230721
  Serious: Yes (Hospitalization, Other)
  Sender: FDA-Public Use
  Company Number: None

PATIENT
  Age: 13 Year
  Sex: Female

DRUGS (1)
  1. DEXTROAMPHET SACCHARAT, AMPHET ASPARTATE, DEXTROAMPHET SULFATE AND AMP [Suspect]
     Active Substance: AMPHETAMINE ASPARTATE\AMPHETAMINE ASPARTATE MONOHYDRATE\AMPHETAMINE SULFATE\DEXTROAMPHETAMINE SACCHA
     Indication: Attention deficit hyperactivity disorder
     Dosage: 30 CAPSULES DAILY ORAL
     Route: 048

REACTIONS (14)
  - Tremor [None]
  - Dizziness [None]
  - Heart rate increased [None]
  - Headache [None]
  - Nausea [None]
  - Confusional state [None]
  - Anxiety [None]
  - Paranoia [None]
  - Feeling of body temperature change [None]
  - Hyperhidrosis [None]
  - Chest pain [None]
  - Panic attack [None]
  - Gait inability [None]
  - Adverse drug reaction [None]

NARRATIVE: CASE EVENT DATE: 20230504
